FAERS Safety Report 11502061 (Version 1)
Quarter: 2015Q3

REPORT INFORMATION
  Report Type: Spontaneous
  Country: FR (occurrence: FR)
  Receive Date: 20150914
  Receipt Date: 20150914
  Transmission Date: 20151125
  Serious: Yes (Other)
  Sender: FDA-Public Use
  Company Number: FR-BAYER-2015-415392

PATIENT
  Sex: Male

DRUGS (1)
  1. ASPIRINE PROTECT [Suspect]
     Active Substance: ASPIRIN

REACTIONS (1)
  - Colitis ischaemic [None]
